FAERS Safety Report 21633916 (Version 1)
Quarter: 2022Q4

REPORT INFORMATION
  Report Type: Spontaneous
  Country: None (occurrence: US)
  Receive Date: 20221123
  Receipt Date: 20221123
  Transmission Date: 20230113
  Serious: No
  Sender: FDA-Public Use
  Company Number: US-Walgreens Premier Brands of America Inc.-2135195

PATIENT
  Age: 43 Year
  Sex: Female

DRUGS (4)
  1. ANTI ITCH (DIPHENHYDRAMINE HYDROCHLORIDE\ZINC ACETATE) [Suspect]
     Active Substance: DIPHENHYDRAMINE HYDROCHLORIDE\ZINC ACETATE
     Indication: Dermatitis contact
     Route: 003
     Dates: start: 20220924, end: 20220926
  2. SILVADENE [Concomitant]
     Active Substance: SILVER SULFADIAZINE
     Route: 061
     Dates: start: 20220928
  3. METHYLPREDNISOLONE ACETATE [Concomitant]
     Active Substance: METHYLPREDNISOLONE ACETATE
     Route: 030
     Dates: start: 20220928
  4. Cool Compresses [Concomitant]
     Dates: start: 20220928

REACTIONS (1)
  - First degree chemical burn of skin [Recovered/Resolved]

NARRATIVE: CASE EVENT DATE: 20220928
